FAERS Safety Report 6827519-8 (Version None)
Quarter: 2010Q3

REPORT INFORMATION
  Report Type: 
  Country: None (occurrence: None)
  Receive Date: 20100709
  Receipt Date: 20070117
  Transmission Date: 20110219
  Serious: No
  Sender: FDA-Public Use
  Company Number: US-PFIZER INC-2007005445

PATIENT
  Sex: Female
  Weight: 38.56 kg

DRUGS (7)
  1. CHANTIX [Suspect]
     Indication: SMOKING CESSATION THERAPY
     Dates: start: 20070108, end: 20070115
  2. FORADIL [Concomitant]
  3. PROTONIX [Concomitant]
  4. EFFEXOR [Concomitant]
  5. OTHER RESPIRATORY SYSTEM PRODUCTS [Concomitant]
  6. OXYGEN [Concomitant]
  7. COMBIVENT [Concomitant]

REACTIONS (2)
  - INCORRECT DOSE ADMINISTERED [None]
  - MIGRAINE [None]
